FAERS Safety Report 14966043 (Version 1)
Quarter: 2018Q2

REPORT INFORMATION
  Report Type: Spontaneous
  Country: GB (occurrence: GB)
  Receive Date: 20180603
  Receipt Date: 20180603
  Transmission Date: 20180711
  Serious: Yes (Life-Threatening, Other)
  Sender: FDA-Public Use
  Company Number: GB-GLENMARK PHARMACEUTICALS-2018GMK035822

PATIENT
  Age: 63 Year
  Sex: Female

DRUGS (8)
  1. REMIFENTANIL [Concomitant]
     Active Substance: REMIFENTANIL
     Indication: ANAESTHESIA PROCEDURE
     Dosage: TARGET CONTROLLED INFUSION RATE OF 1-2 NG/ML
     Route: 065
  2. EPINEPHRINE. [Concomitant]
     Active Substance: EPINEPHRINE
     Indication: PRODUCT USED FOR UNKNOWN INDICATION
     Dosage: 1:2,000,000
     Route: 065
  3. LIDOCAINE. [Suspect]
     Active Substance: LIDOCAINE
     Indication: ANAESTHESIA PROCEDURE
     Dosage: 20 ML, UNK
     Route: 030
  4. MIDAZOLAM [Concomitant]
     Active Substance: MIDAZOLAM HYDROCHLORIDE
     Indication: ANAESTHESIA PROCEDURE
     Dosage: 1 MG, UNK
     Route: 065
  5. OXYGEN. [Concomitant]
     Active Substance: OXYGEN
     Indication: PRODUCT USED FOR UNKNOWN INDICATION
     Dosage: RATE OF 2 L/MINUTE
     Route: 045
  6. LIDOCAINE. [Suspect]
     Active Substance: LIDOCAINE
     Dosage: LIGNOCAINE SOAKED PATTY ON THE DURA
  7. KETAMINE [Concomitant]
     Active Substance: KETAMINE
     Indication: ANAESTHESIA PROCEDURE
     Dosage: 0.2 MG/KG, UNK
     Route: 065
  8. KETAMINE [Concomitant]
     Active Substance: KETAMINE
     Indication: ANAESTHESIA PROCEDURE
     Dosage: KETAMINE BOLUS 0.5 MG/KG

REACTIONS (1)
  - Apnoeic attack [Recovered/Resolved]
